FAERS Safety Report 19073810 (Version 1)
Quarter: 2021Q1

REPORT INFORMATION
  Report Type: Spontaneous
  Country: US (occurrence: US)
  Receive Date: 20210330
  Receipt Date: 20210330
  Transmission Date: 20210420
  Serious: Yes (Hospitalization)
  Sender: FDA-Public Use
  Company Number: US-ALLERGAN-2111314US

PATIENT
  Sex: Female

DRUGS (2)
  1. CELEXA [Suspect]
     Active Substance: CITALOPRAM HYDROBROMIDE
     Indication: DISTURBANCE IN ATTENTION
     Dosage: 15 MG OR 10 MG A DAY
     Route: 048
  2. ANTIHISTAMINES [Concomitant]
     Active Substance: ANTIHISTAMINES NOS

REACTIONS (7)
  - Brain injury [Unknown]
  - Drug effective for unapproved indication [Unknown]
  - Fracture [Unknown]
  - Product dose omission issue [Unknown]
  - Loss of consciousness [Unknown]
  - Vision blurred [Unknown]
  - Off label use [Unknown]

NARRATIVE: CASE EVENT DATE: 2015
